FAERS Safety Report 22275976 (Version 1)
Quarter: 2023Q2

REPORT INFORMATION
  Report Type: Spontaneous
  Country: US (occurrence: US)
  Receive Date: 20230502
  Receipt Date: 20230502
  Transmission Date: 20230721
  Serious: Yes (Other)
  Sender: FDA-Public Use
  Company Number: US-FreseniusKabi-FK202305799

PATIENT
  Age: 33 Year
  Sex: Female

DRUGS (5)
  1. ETOPOSIDE [Suspect]
     Active Substance: ETOPOSIDE
     Indication: Ovarian germ cell tumour mixed
     Dosage: FOUR CYCLES (BEP)
  2. ETOPOSIDE [Suspect]
     Active Substance: ETOPOSIDE
     Dosage: TWO CYCLES
  3. CISPLATIN [Suspect]
     Active Substance: CISPLATIN
     Indication: Ovarian germ cell tumour mixed
     Dosage: FOUR CYCLES (BEP)
  4. CISPLATIN [Suspect]
     Active Substance: CISPLATIN
     Dosage: TWO CYCLES
  5. BLEOMYCIN [Suspect]
     Active Substance: BLEOMYCIN SULFATE
     Indication: Ovarian germ cell tumour mixed
     Dosage: FOUR CYCLES  (BEP)

REACTIONS (2)
  - Growing teratoma syndrome [Recovered/Resolved]
  - Pulmonary fibrosis [Unknown]
